FAERS Safety Report 6288093-0 (Version None)
Quarter: 2009Q3

REPORT INFORMATION
  Report Type: 
  Country: None (occurrence: None)
  Receive Date: 20090729
  Receipt Date: 20080623
  Transmission Date: 20100115
  Serious: No
  Sender: FDA-Public Use
  Company Number: A0734524A

PATIENT
  Age: 48 Year
  Sex: Male

DRUGS (3)
  1. RANITIDINE [Suspect]
     Indication: PROPHYLAXIS
     Dosage: 150MG TWICE PER DAY
     Route: 048
     Dates: start: 20050101
  2. PANCRELIPASE [Concomitant]
  3. LACTULOSE [Concomitant]

REACTIONS (1)
  - DRUG SCREEN POSITIVE [None]
